FAERS Safety Report 17424136 (Version 4)
Quarter: 2021Q2

REPORT INFORMATION
  Report Type: Spontaneous
  Country: US (occurrence: US)
  Receive Date: 20200217
  Receipt Date: 20210621
  Transmission Date: 20210716
  Serious: Yes (Hospitalization, Other)
  Sender: FDA-Public Use
  Company Number: US-GILEAD-2020-0450654

PATIENT
  Age: 48 Year
  Sex: Male
  Weight: 83.9 kg

DRUGS (95)
  1. VIREAD [Suspect]
     Active Substance: TENOFOVIR DISOPROXIL FUMARATE
     Dosage: 1 DOSAGE FORM, QD
     Route: 048
     Dates: start: 201101, end: 20121024
  2. LORAZEPAM. [Concomitant]
     Active Substance: LORAZEPAM
  3. FAMOTIDINE. [Concomitant]
     Active Substance: FAMOTIDINE
  4. SUCRALFATE. [Concomitant]
     Active Substance: SUCRALFATE
  5. EGRIFTA [Concomitant]
     Active Substance: TESAMORELIN ACETATE
  6. DOXYCYCLINE. [Concomitant]
     Active Substance: DOXYCYCLINE
  7. CLINDAMYCIN. [Concomitant]
     Active Substance: CLINDAMYCIN
  8. FLURAZEPAM [Concomitant]
     Active Substance: FLURAZEPAM HYDROCHLORIDE
  9. BEVACIZUMAB. [Concomitant]
     Active Substance: BEVACIZUMAB
  10. AMOXICILLIN. [Concomitant]
     Active Substance: AMOXICILLIN
  11. ASPIRIN [ACETYLSALICYLIC ACID] [Concomitant]
     Active Substance: ASPIRIN
  12. NORVIR [Concomitant]
     Active Substance: RITONAVIR
  13. HUMAN GROWTH HORMONE, RECOMBINANT [Suspect]
     Active Substance: SOMATROPIN
     Indication: PRODUCT USED FOR UNKNOWN INDICATION
     Dosage: UNK
     Route: 065
  14. ISENTRESS [Concomitant]
     Active Substance: RALTEGRAVIR POTASSIUM
     Indication: HIV INFECTION
     Dosage: UNK
     Route: 065
  15. LIPITOR [Concomitant]
     Active Substance: ATORVASTATIN CALCIUM
  16. HYDROCHLOROTHIAZIDE. [Concomitant]
     Active Substance: HYDROCHLOROTHIAZIDE
  17. AMLODIPINE [Concomitant]
     Active Substance: AMLODIPINE BESYLATE
  18. AZITHROMYCIN ANHYDROUS. [Concomitant]
     Active Substance: AZITHROMYCIN ANHYDROUS
  19. PREDNISONE. [Concomitant]
     Active Substance: PREDNISONE
  20. CEFACLOR. [Concomitant]
     Active Substance: CEFACLOR
  21. OMEGA?3 FISH OIL [Concomitant]
     Active Substance: FISH OIL\OMEGA-3 FATTY ACIDS
  22. ASPIRIN 81 [Concomitant]
     Active Substance: ASPIRIN
  23. ELIQUIS [Concomitant]
     Active Substance: APIXABAN
  24. DULOXETINE. [Concomitant]
     Active Substance: DULOXETINE
  25. ALLOPURINOL. [Concomitant]
     Active Substance: ALLOPURINOL
  26. ACICLOVIR [Concomitant]
     Active Substance: ACYCLOVIR
  27. AMITRIPTYLINE [Concomitant]
     Active Substance: AMITRIPTYLINE
  28. FLOMAX [Concomitant]
     Active Substance: TAMSULOSIN HYDROCHLORIDE
  29. COMBIVIR [Concomitant]
     Active Substance: LAMIVUDINE\ZIDOVUDINE
  30. EPIVIR [Concomitant]
     Active Substance: LAMIVUDINE
  31. TROGARZO [Concomitant]
     Active Substance: IBALIZUMAB-UIYK
  32. VIDEX [Concomitant]
     Active Substance: DIDANOSINE
  33. VIREAD [Suspect]
     Active Substance: TENOFOVIR DISOPROXIL FUMARATE
     Dosage: UNK
     Route: 048
     Dates: start: 20070109, end: 20121024
  34. METOPROLOL TARTRATE. [Concomitant]
     Active Substance: METOPROLOL TARTRATE
  35. AMOXICILLIN AND CLAVULANATE POTASSIUM [Concomitant]
     Active Substance: AMOXICILLIN\CLAVULANATE POTASSIUM
  36. ABACAVIR. [Concomitant]
     Active Substance: ABACAVIR
  37. QVAR [Concomitant]
     Active Substance: BECLOMETHASONE DIPROPIONATE
  38. METHYLPHENIDAT [Concomitant]
     Active Substance: METHYLPHENIDATE
  39. ANDROGEL [Concomitant]
     Active Substance: TESTOSTERONE
  40. SUSTIVA [Concomitant]
     Active Substance: EFAVIRENZ
  41. ACETAMINOPHEN. [Concomitant]
     Active Substance: ACETAMINOPHEN
  42. AMPICILLIN [Concomitant]
     Active Substance: AMPICILLIN
  43. ATORVASTATIN [Concomitant]
     Active Substance: ATORVASTATIN
  44. EMTRIVA [Concomitant]
     Active Substance: EMTRICITABINE
  45. BUPROPION. [Concomitant]
     Active Substance: BUPROPION
  46. FLUTICASONE PROPIONATE. [Concomitant]
     Active Substance: FLUTICASONE PROPIONATE
  47. MELOXICAM. [Concomitant]
     Active Substance: MELOXICAM
  48. PREZISTA [Concomitant]
     Active Substance: DARUNAVIR ETHANOLATE
  49. ADDERALL [Concomitant]
     Active Substance: AMPHETAMINE ASPARTATE\AMPHETAMINE SULFATE\DEXTROAMPHETAMINE SACCHARATE\DEXTROAMPHETAMINE SULFATE
  50. BACLOFEN. [Concomitant]
     Active Substance: BACLOFEN
  51. CYANOCOBALAMIN. [Concomitant]
     Active Substance: CYANOCOBALAMIN
  52. MIRTAZAPINE. [Concomitant]
     Active Substance: MIRTAZAPINE
  53. GABAPENTIN. [Concomitant]
     Active Substance: GABAPENTIN
  54. FUROSEMIDE. [Concomitant]
     Active Substance: FUROSEMIDE
  55. PENICILLIN G [BENZYLPENICILLIN] [Concomitant]
     Active Substance: PENICILLIN G
  56. RESCRIPTOR [Concomitant]
     Active Substance: DELAVIRDINE MESYLATE
  57. ZERIT [Concomitant]
     Active Substance: STAVUDINE
  58. GENVOYA [Concomitant]
     Active Substance: COBICISTAT\ELVITEGRAVIR\EMTRICITABINE\TENOFOVIR ALAFENAMIDE FUMARATE
  59. ZIAGEN [Concomitant]
     Active Substance: ABACAVIR SULFATE
  60. LEVITRA [Concomitant]
     Active Substance: VARDENAFIL HYDROCHLORIDE
  61. TIVICAY [Concomitant]
     Active Substance: DOLUTEGRAVIR SODIUM
  62. LONOX [Concomitant]
     Active Substance: ATROPINE SULFATE\DIPHENOXYLATE HYDROCHLORIDE
  63. PANTOPRAZOLE [Concomitant]
     Active Substance: PANTOPRAZOLE
  64. VALACYCLOVIR HCL [Concomitant]
     Active Substance: VALACYCLOVIR HYDROCHLORIDE
  65. VIRAMUNE [Concomitant]
     Active Substance: NEVIRAPINE
  66. OMEPRAZOLE. [Concomitant]
     Active Substance: OMEPRAZOLE
  67. K?TAB [Concomitant]
     Active Substance: POTASSIUM CHLORIDE
  68. POTASSIUM CHLORIDE. [Concomitant]
     Active Substance: POTASSIUM CHLORIDE
  69. INTELENCE [Concomitant]
     Active Substance: ETRAVIRINE
  70. RANIBIZUMAB. [Concomitant]
     Active Substance: RANIBIZUMAB
  71. CLOTRIMAZOLE. [Concomitant]
     Active Substance: CLOTRIMAZOLE
  72. RAYALDEE [Concomitant]
     Active Substance: CALCIFEDIOL
  73. ARMOUR THYROID [Concomitant]
     Active Substance: THYROID, PORCINE
  74. FLEET LAXATIVE [Concomitant]
  75. RETROVIR [Concomitant]
     Active Substance: ZIDOVUDINE
  76. VIDEX EC [Concomitant]
     Active Substance: DIDANOSINE
  77. ACYCLOVIR [ACICLOVIR] [Concomitant]
     Active Substance: ACYCLOVIR
  78. NORVIR [Concomitant]
     Active Substance: RITONAVIR
  79. FLUNISOLIDE. [Concomitant]
     Active Substance: FLUNISOLIDE
  80. NORTRIPTYLIN [Concomitant]
     Active Substance: NORTRIPTYLINE
  81. FLUCONAZOLE. [Concomitant]
     Active Substance: FLUCONAZOLE
  82. METRONIDAZOLE. [Concomitant]
     Active Substance: METRONIDAZOLE
  83. MELATONIN [Concomitant]
     Active Substance: MELATONIN
  84. AMITIZA [Concomitant]
     Active Substance: LUBIPROSTONE
  85. LASIX [Concomitant]
     Active Substance: FUROSEMIDE
  86. VIREAD [Suspect]
     Active Substance: TENOFOVIR DISOPROXIL FUMARATE
     Indication: HIV INFECTION
     Dosage: 1 DOSAGE FORM, QD
     Route: 048
     Dates: start: 20070109, end: 200704
  87. TRUVADA [Suspect]
     Active Substance: EMTRICITABINE\TENOFOVIR DISOPROXIL FUMARATE
     Indication: HIV INFECTION
     Dosage: 1 DOSAGE FORM, QD
     Route: 048
     Dates: start: 20121017, end: 20141013
  88. VIRACEPT [Concomitant]
     Active Substance: NELFINAVIR MESYLATE
  89. LISINOPRIL. [Concomitant]
     Active Substance: LISINOPRIL
  90. SELENIUM [Concomitant]
     Active Substance: SELENIUM
  91. DEPO?TESTOSTERONE [Concomitant]
     Active Substance: TESTOSTERONE CYPIONATE
  92. COMBIVENT [Concomitant]
     Active Substance: ALBUTEROL SULFATE\IPRATROPIUM BROMIDE
  93. NORTRIPTYLINE [Concomitant]
     Active Substance: NORTRIPTYLINE
  94. TERAZOSIN [Concomitant]
     Active Substance: TERAZOSIN HYDROCHLORIDE
  95. ISENTRESS [Concomitant]
     Active Substance: RALTEGRAVIR POTASSIUM

REACTIONS (14)
  - Renal failure [Unknown]
  - Bone density decreased [Unknown]
  - Pain [Unknown]
  - Anhedonia [Unknown]
  - Loss of personal independence in daily activities [Unknown]
  - Chronic kidney disease [Not Recovered/Not Resolved]
  - Osteopenia [Unknown]
  - Hip arthroplasty [Not Recovered/Not Resolved]
  - Hip arthroplasty [Not Recovered/Not Resolved]
  - Emotional distress [Unknown]
  - Acute kidney injury [Not Recovered/Not Resolved]
  - Bone loss [Unknown]
  - Anxiety [Unknown]
  - Economic problem [Unknown]

NARRATIVE: CASE EVENT DATE: 20100506
